FAERS Safety Report 25117119 (Version 1)
Quarter: 2025Q1

REPORT INFORMATION
  Report Type: Spontaneous
  Country: IT (occurrence: IT)
  Receive Date: 20250325
  Receipt Date: 20250325
  Transmission Date: 20250409
  Serious: Yes (Other)
  Sender: AUROBINDO
  Company Number: IT-ASTRAZENECA-202411GLO023046IT

PATIENT
  Age: 32 Year
  Sex: Male

DRUGS (4)
  1. ROSUVASTATIN [Suspect]
     Active Substance: ROSUVASTATIN
     Indication: Type IIa hyperlipidaemia
     Route: 048
     Dates: start: 201704, end: 202205
  2. EZETIMIBE [Suspect]
     Active Substance: EZETIMIBE
     Indication: Type IIa hyperlipidaemia
     Dosage: 10 MILLIGRAM, ONCE A DAY
     Route: 065
  3. EVOLOCUMAB [Suspect]
     Active Substance: EVOLOCUMAB
     Indication: Type IIa hyperlipidaemia
     Route: 065
  4. ARGININE [Concomitant]
     Active Substance: ARGININE
     Indication: Product used for unknown indication
     Route: 065

REACTIONS (4)
  - Oligoasthenozoospermia [Recovered/Resolved]
  - Asthenospermia [Recovered/Resolved]
  - Lipids abnormal [Recovered/Resolved]
  - Infertility [Recovered/Resolved]

NARRATIVE: CASE EVENT DATE: 20220501
